FAERS Safety Report 6969116-X (Version None)
Quarter: 2010Q3

REPORT INFORMATION
  Report Type: 
  Country: None (occurrence: None)
  Receive Date: 20100907
  Receipt Date: 20100826
  Transmission Date: 20110219
  Serious: Yes (Death)
  Sender: FDA-Public Use
  Company Number: JP-PFIZER INC-2010098805

PATIENT
  Age: 62 Year
  Sex: Male
  Weight: 58.8 kg

DRUGS (9)
  1. SILDENAFIL CITRATE [Suspect]
     Indication: PULMONARY ARTERIAL HYPERTENSION
     Dosage: 5 MG, 3X/DAY
     Route: 048
     Dates: start: 20100722, end: 20100726
  2. SILDENAFIL CITRATE [Suspect]
     Dosage: 10 MG, 3X/DAY
     Route: 048
     Dates: start: 20100727, end: 20100802
  3. PROCYLIN [Concomitant]
     Indication: PULMONARY ARTERIAL HYPERTENSION
     Dosage: UNK
     Route: 048
     Dates: end: 20100802
  4. LASIX [Concomitant]
     Indication: PULMONARY ARTERIAL HYPERTENSION
     Dosage: UNK
     Route: 048
     Dates: end: 20100802
  5. WARFARIN [Concomitant]
     Indication: PULMONARY ARTERIAL HYPERTENSION
     Dosage: UNK
     Route: 048
     Dates: end: 20100802
  6. PREDONINE [Concomitant]
     Dosage: UNK
     Route: 048
     Dates: end: 20100802
  7. SPIRIVA [Concomitant]
     Dosage: UNK
     Route: 048
     Dates: end: 20100802
  8. SALMETEROL XINAFOATE [Concomitant]
     Dosage: UNK
     Route: 048
     Dates: end: 20100802
  9. TAKEPRON [Concomitant]
     Dosage: UNK
     Route: 048
     Dates: end: 20100802

REACTIONS (1)
  - INTERSTITIAL LUNG DISEASE [None]
